FAERS Safety Report 5524491-8 (Version None)
Quarter: 2007Q4

REPORT INFORMATION
  Report Type: 
  Country: None (occurrence: None)
  Receive Date: 20071122
  Receipt Date: 20071114
  Transmission Date: 20080405
  Serious: Yes (Hospitalization)
  Sender: FDA-Public Use
  Company Number: PHHO2007NL15210

PATIENT
  Age: 55 Year
  Sex: Male
  Weight: 77 kg

DRUGS (3)
  1. RAD OR NEORAL VS MYFORTIC [Suspect]
     Indication: RENAL TRANSPLANT
     Dosage: 1440MG
     Dates: start: 20061007
  2. NEORAL [Suspect]
     Indication: RENAL TRANSPLANT
     Dosage: 400MG
     Dates: start: 20061007
  3. PREDNISOLONE [Suspect]
     Indication: RENAL TRANSPLANT
     Dosage: 10MG
     Dates: start: 20061007

REACTIONS (7)
  - BLOOD CREATININE INCREASED [None]
  - HAEMATURIA [None]
  - HYDRONEPHROSIS [None]
  - NEPHROSTOMY [None]
  - RENAL IMPAIRMENT [None]
  - URETERIC STENOSIS [None]
  - UROSEPSIS [None]
